FAERS Safety Report 16582367 (Version 1)
Quarter: 2019Q3

REPORT INFORMATION
  Report Type: Spontaneous
  Country: CA (occurrence: CA)
  Receive Date: 20190717
  Receipt Date: 20190717
  Transmission Date: 20191004
  Serious: Yes (Other)
  Sender: FDA-Public Use
  Company Number: CA-009507513-1907CAN008557

PATIENT
  Age: 61 Year
  Sex: Male

DRUGS (1)
  1. REMERON [Suspect]
     Active Substance: MIRTAZAPINE
     Dosage: UNKNOWN
     Route: 065
     Dates: start: 2014, end: 2014

REACTIONS (1)
  - Spinal cord abscess [Unknown]

NARRATIVE: CASE EVENT DATE: 2014
